FAERS Safety Report 9265108 (Version 9)
Quarter: 2013Q3

REPORT INFORMATION
  Report Type: Spontaneous
  Country: US (occurrence: US)
  Receive Date: 20130501
  Receipt Date: 20130906
  Transmission Date: 20140515
  Serious: No
  Sender: FDA-Public Use
  Company Number: US-PFIZER INC-2013134279

PATIENT
  Age: 62 Year
  Sex: Female
  Weight: 64 kg

DRUGS (21)
  1. SUTENT [Suspect]
     Indication: GASTROINTESTINAL STROMAL TUMOUR
     Dosage: 37.5 MG, 1X/DAY
     Route: 048
     Dates: start: 20130412, end: 20130713
  2. GLEEVEC [Suspect]
     Dosage: UNK
     Dates: start: 20001214, end: 20130411
  3. SYNTHROID [Suspect]
     Indication: THYROID DISORDER
     Dosage: 75 UG, UNK
  4. ADVIL PM [Concomitant]
     Dosage: 1 TABLET AT BEDTIME
     Route: 048
  5. CELLUVISC [Concomitant]
     Dosage: UNK
  6. CENTRUM SILVER [Concomitant]
     Dosage: 1 TABLET DAILY
     Route: 048
  7. CITRACAL / VITAMIN D [Concomitant]
     Dosage: UNK
  8. HYDROCHLOROTHIAZIDE [Concomitant]
     Dosage: 25 MG, 1X/DAY
     Route: 048
  9. MELATONIN [Concomitant]
     Dosage: 3 MG, 1X/DAY
     Route: 048
  10. PREDNISONE [Concomitant]
     Indication: PREMEDICATION
     Dosage: 20 MG, BEFORE CT SCAN AS INS
     Route: 048
  11. CALCIUM CITRATE [Concomitant]
     Dosage: 600 MG 2 TABS DAILY
     Route: 048
  12. FISH OIL [Concomitant]
     Dosage: 1000 MG, UNK
  13. FISH OIL [Concomitant]
     Dosage: 2000 MG, 1X/DAY
     Route: 048
  14. POTASSIUM [Concomitant]
     Dosage: 75 MG, UNK
  15. VITAMIN D [Concomitant]
     Dosage: 1 TABLET DAILY
     Route: 048
  16. KLOR-CON [Concomitant]
     Dosage: 10 MEQ, UNK
  17. PREMARIN [Concomitant]
     Dosage: 0.625 MG, UNK
  18. PREDNISOLONE [Concomitant]
     Dosage: 15 MG, UNK
  19. ADVIL [Concomitant]
     Dosage: 200 MG, UNK
  20. POTASSIUM CHLORIDE [Concomitant]
     Dosage: 10 MEQ 2 TABS DAILY
     Route: 048
  21. CHOLESTYRAMINE [Concomitant]
     Dosage: UNK

REACTIONS (22)
  - Blister [Recovered/Resolved]
  - Oral pain [Recovered/Resolved]
  - Nail bed tenderness [Recovered/Resolved]
  - Diarrhoea [Recovered/Resolved]
  - Post gastric surgery syndrome [Unknown]
  - Abdominal pain [Unknown]
  - Nausea [Unknown]
  - Vomiting [Unknown]
  - Pruritus [Recovered/Resolved]
  - Asthenia [Unknown]
  - Gingival pain [Not Recovered/Not Resolved]
  - Odynophagia [Unknown]
  - Oropharyngeal pain [Unknown]
  - Disease progression [Unknown]
  - Gastrointestinal stromal tumour [Unknown]
  - Oral mucosal blistering [Recovered/Resolved]
  - Eating disorder [Recovered/Resolved]
  - Weight decreased [Unknown]
  - White blood cell count decreased [Unknown]
  - Red blood cell count decreased [Unknown]
  - Granulocyte count decreased [Unknown]
  - Platelet count decreased [Unknown]
